FAERS Safety Report 7714003-2 (Version None)
Quarter: 2011Q3

REPORT INFORMATION
  Report Type: 
  Country: None (occurrence: None)
  Receive Date: 20110826
  Receipt Date: 20110811
  Transmission Date: 20111222
  Serious: Yes (Hospitalization)
  Sender: FDA-Public Use
  Company Number: US-WATSON-2011-08086

PATIENT
  Sex: Male
  Weight: 110 kg

DRUGS (11)
  1. APO-HYDROXYZINE [Concomitant]
     Indication: PRODUCT USED FOR UNKNOWN INDICATION
     Dosage: UNK
     Route: 065
  2. ALDACTONE [Concomitant]
     Indication: PRODUCT USED FOR UNKNOWN INDICATION
     Dosage: UNK
     Route: 065
  3. PAXIL [Concomitant]
     Indication: DEPRESSION
     Dosage: ^FOR YEARS,^ TAKES 1 TABLET DAILY
     Route: 048
  4. FENTANYL-50 [Suspect]
     Indication: BACK PAIN
     Dosage: 1 PATCH Q 72 HOURS
     Route: 062
     Dates: start: 20100801, end: 20101201
  5. XANAX [Concomitant]
     Indication: ANXIETY
  6. PERCOCET [Concomitant]
     Indication: PRODUCT USED FOR UNKNOWN INDICATION
     Dosage: 1 EVERY 4-6 HOURS AS NEEDED
     Route: 065
  7. LASIX [Concomitant]
     Indication: PRODUCT USED FOR UNKNOWN INDICATION
     Dosage: UNK
     Route: 065
  8. VISTARIL                           /00058402/ [Concomitant]
     Indication: ANXIETY
     Dosage: ^FOR YEARS,^ TAKES 1 TABLET TID
     Route: 048
  9. TOPROL-XL [Concomitant]
     Indication: BLOOD PRESSURE
     Dosage: ^FOR YEARS,^ TAKES 1 TABLET DAILY
     Route: 048
  10. XANAX [Concomitant]
     Indication: DEPRESSION
     Dosage: ^FOR YEARS^; TAKES 1 TABLET  QID
     Route: 048
  11. FENTANYL-75 [Suspect]
     Indication: BACK PAIN
     Dosage: 1 PATCH EVERY 72 HOURS
     Route: 062
     Dates: start: 20101201, end: 20110807

REACTIONS (13)
  - HEART RATE INCREASED [None]
  - SENSORY DISTURBANCE [None]
  - HYPOAESTHESIA [None]
  - NAIL GROWTH ABNORMAL [None]
  - SURGERY [None]
  - HYPERHIDROSIS [None]
  - VASCULITIS [None]
  - PARAESTHESIA [None]
  - DRY SKIN [None]
  - ERYTHEMA [None]
  - DYSPNOEA [None]
  - ONYCHOCLASIS [None]
  - MUSCULOSKELETAL DISCOMFORT [None]
